FAERS Safety Report 25447039 (Version 1)
Quarter: 2025Q2

REPORT INFORMATION
  Report Type: Spontaneous
  Country: US (occurrence: None)
  Receive Date: 20250617
  Receipt Date: 20250617
  Transmission Date: 20250716
  Serious: No
  Sender: FDA-CTU
  Company Number: None

PATIENT
  Age: 64 Year
  Sex: Female
  Weight: 135.2 kg

DRUGS (13)
  1. AIMOVIG [Suspect]
     Active Substance: ERENUMAB-AOOE
     Indication: Migraine prophylaxis
     Route: 058
     Dates: start: 20240201
  2. BOTOX [Concomitant]
     Active Substance: ONABOTULINUMTOXINA
  3. LEXAPRO 20MG TABLETS [Concomitant]
  4. ABILIFY 2MG** TABLETS [Concomitant]
  5. TRIAMTERENE 37.5MG/ HCTZ 25MG TABS [Concomitant]
  6. SINGULAIR 10MG TABLETS [Concomitant]
  7. TIZANIDINE HYDROCHLORIDE [Concomitant]
     Active Substance: TIZANIDINE HYDROCHLORIDE
  8. PRAMIPEXOLE 0.25MG TABLETS [Concomitant]
  9. TRAZODONE [Concomitant]
     Active Substance: TRAZODONE HYDROCHLORIDE
  10. POTASSIUM 99MG TABLETS [Concomitant]
  11. NEXIUM 40MG CAPSULES [Concomitant]
  12. ALLEGRA ALLERGY 60MG TABS [Concomitant]
  13. BENADRYL 25MG ALLERGY ULTRA TABS [Concomitant]

REACTIONS (1)
  - Constipation [None]

NARRATIVE: CASE EVENT DATE: 20250425
